FAERS Safety Report 11230593 (Version 1)
Quarter: 2015Q3

REPORT INFORMATION
  Report Type: Spontaneous
  Country: US (occurrence: US)
  Receive Date: 20150701
  Receipt Date: 20150701
  Transmission Date: 20151125
  Serious: No
  Sender: FDA-Public Use
  Company Number: US-PFIZER INC-2015213159

PATIENT
  Age: 42 Year
  Sex: Male
  Weight: 121 kg

DRUGS (2)
  1. DELTASONE [Suspect]
     Active Substance: PREDNISONE
     Dosage: UNK
  2. VFEND [Suspect]
     Active Substance: VORICONAZOLE
     Dosage: UNK

REACTIONS (1)
  - Haemoptysis [Unknown]
